FAERS Safety Report 7488374-9 (Version None)
Quarter: 2011Q2

REPORT INFORMATION
  Report Type: 
  Country: None (occurrence: None)
  Receive Date: 20110518
  Receipt Date: 20110512
  Transmission Date: 20111010
  Serious: Yes (Life-Threatening, Hospitalization, Other)
  Sender: FDA-Public Use
  Company Number: GB-PFIZER INC-2011102853

PATIENT
  Age: 40 Year
  Sex: Female
  Weight: 75 kg

DRUGS (3)
  1. PEGVISOMANT [Suspect]
     Indication: ACROMEGALY
     Dosage: 80 MG, UNK
     Route: 058
     Dates: start: 20110406, end: 20110406
  2. LANREOTIDE [Concomitant]
     Indication: ACROMEGALY
     Dosage: UNK
     Route: 030
     Dates: start: 20100301
  3. LEVOTHYROXINE [Concomitant]
     Indication: SECONDARY HYPOTHYROIDISM
     Dosage: 75 MG, UNK
     Route: 048
     Dates: start: 20090701

REACTIONS (1)
  - ANAPHYLACTOID REACTION [None]
